FAERS Safety Report 8740381 (Version 2)
Quarter: 2013Q4

REPORT INFORMATION
  Report Type: Spontaneous
  Country: US (occurrence: US)
  Receive Date: 20120823
  Receipt Date: 20131101
  Transmission Date: 20140711
  Serious: No
  Sender: FDA-Public Use
  Company Number: US-009507513-1208USA004805

PATIENT
  Sex: Female

DRUGS (1)
  1. ZIOPTAN [Suspect]
     Dosage: UNK
     Route: 031
     Dates: end: 20120805

REACTIONS (3)
  - Arthralgia [Recovered/Resolved]
  - Chest pain [Recovering/Resolving]
  - Headache [Recovering/Resolving]
